FAERS Safety Report 21036127 (Version 1)
Quarter: 2022Q3

REPORT INFORMATION
  Report Type: Spontaneous
  Country: US (occurrence: US)
  Receive Date: 20220701
  Receipt Date: 20220701
  Transmission Date: 20221027
  Serious: No
  Sender: FDA-Public Use
  Company Number: US-THERAPEUTICSMD-2021TMD02453

PATIENT
  Sex: Female
  Weight: 66.667 kg

DRUGS (8)
  1. IMVEXXY [Suspect]
     Active Substance: ESTRADIOL
     Indication: Vulvovaginal dryness
     Dosage: 10 ?G, 1X/DAY BEFORE BED
     Route: 067
     Dates: start: 20210828, end: 20210910
  2. IMVEXXY [Suspect]
     Active Substance: ESTRADIOL
     Indication: Dyspareunia
     Dosage: 10 ?G, 2X/WEEK BEFORE BED
     Route: 067
     Dates: start: 202109
  3. ARMOUR THYROID [Concomitant]
     Active Substance: THYROID, PORCINE
     Dosage: UNK
  4. SYNTHROID [Concomitant]
     Active Substance: LEVOTHYROXINE SODIUM
     Indication: Tri-iodothyronine increased
     Dosage: UNK
     Dates: start: 202101
  5. AIMOVIG [Concomitant]
     Active Substance: ERENUMAB-AOOE
  6. MIRALAX [Concomitant]
     Active Substance: POLYETHYLENE GLYCOL 3350
  7. LUNESTA [Concomitant]
     Active Substance: ESZOPICLONE
  8. ZOMIG [Concomitant]
     Active Substance: ZOLMITRIPTAN

REACTIONS (4)
  - Weight increased [Not Recovered/Not Resolved]
  - Fat tissue increased [Not Recovered/Not Resolved]
  - Breast enlargement [Not Recovered/Not Resolved]
  - Expired product administered [Not Recovered/Not Resolved]

NARRATIVE: CASE EVENT DATE: 20210101
